FAERS Safety Report 13191701 (Version 1)
Quarter: 2017Q1

REPORT INFORMATION
  Report Type: Spontaneous
  Country: US (occurrence: US)
  Receive Date: 20170206
  Receipt Date: 20170206
  Transmission Date: 20170428
  Serious: No
  Sender: FDA-Public Use
  Company Number: None

PATIENT
  Age: 53 Year
  Sex: Female
  Weight: 96.75 kg

DRUGS (9)
  1. LEVOTHYROXINE 25 MCG TAB MFG: [Suspect]
     Active Substance: LEVOTHYROXINE
     Indication: HYPOTHYROIDISM
     Dosage: ?          OTHER STRENGTH:MCG;QUANTITY:1 TABLET(S);?
     Route: 048
     Dates: start: 20170119, end: 20170124
  2. LISINOPRIL. [Concomitant]
     Active Substance: LISINOPRIL
  3. VITAMIN C WITH ROSE HIPS [Concomitant]
  4. LORATADINE. [Concomitant]
     Active Substance: LORATADINE
  5. EQUATE [Concomitant]
     Active Substance: UNSPECIFIED INGREDIENT
  6. VITAMIN D3 [Concomitant]
     Active Substance: CHOLECALCIFEROL
  7. LOVOSTATIN [Concomitant]
  8. WOMEN^S MULTIVITAMIN/MULTIMINERAL [Concomitant]
  9. METFORMIN [Concomitant]
     Active Substance: METFORMIN HYDROCHLORIDE

REACTIONS (3)
  - Vulvovaginal rash [None]
  - Vulvovaginal pruritus [None]
  - Vulvovaginal pain [None]

NARRATIVE: CASE EVENT DATE: 20170124
